FAERS Safety Report 10684202 (Version 3)
Quarter: 2015Q1

REPORT INFORMATION
  Report Type: Report from Study
  Country: CN (occurrence: CN)
  Receive Date: 20141231
  Receipt Date: 20150108
  Transmission Date: 20150720
  Serious: Yes (Other)
  Sender: FDA-Public Use
  Company Number: CN-ROCHE-1512037

PATIENT

DRUGS (2)
  1. CAPECITABINE. [Suspect]
     Active Substance: CAPECITABINE
     Indication: GASTRIC CANCER
     Dosage: DOSAGE: 1.0/M2 OA TWICE/D D1 TO 14 (REPEAT THE PROCEDURES FOR 3 WEEKS).
     Route: 065
  2. OXALIPLATIN. [Suspect]
     Active Substance: OXALIPLATIN
     Indication: GASTRIC CANCER
     Route: 042

REACTIONS (11)
  - Vomiting [Unknown]
  - Anaemia [Unknown]
  - Thrombocytopenia [Unknown]
  - Stomatitis [Unknown]
  - Leukopenia [Unknown]
  - Renal impairment [Unknown]
  - Neurotoxicity [Unknown]
  - Palmar-plantar erythrodysaesthesia syndrome [Unknown]
  - Hepatic function abnormal [Unknown]
  - Diarrhoea [Unknown]
  - Nausea [Unknown]
